FAERS Safety Report 6495386-0 (Version None)
Quarter: 2009Q4

REPORT INFORMATION
  Report Type: 
  Country: None (occurrence: None)
  Receive Date: 20091214
  Receipt Date: 20090615
  Transmission Date: 20100525
  Serious: No
  Sender: FDA-Public Use
  Company Number: US-BRISTOL-MYERS SQUIBB COMPANY-14664189

PATIENT
  Age: 28 Year
  Sex: Male
  Weight: 91 kg

DRUGS (1)
  1. ABILIFY [Suspect]
     Indication: BIPOLAR DISORDER
     Dosage: INCREASED TO 30MG QD
     Dates: start: 20090101

REACTIONS (1)
  - TREMOR [None]
